FAERS Safety Report 14315305 (Version 1)
Quarter: 2017Q4

REPORT INFORMATION
  Report Type: Report from Study
  Country: ZA (occurrence: ZA)
  Receive Date: 20171221
  Receipt Date: 20171221
  Transmission Date: 20180321
  Serious: Yes (Hospitalization, Other)
  Sender: FDA-Public Use
  Company Number: ZA-TAKEDA-2017TUS026276

PATIENT
  Age: 44 Year
  Sex: Female
  Weight: 59 kg

DRUGS (13)
  1. PROGRAF [Concomitant]
     Active Substance: TACROLIMUS\TACROLIMUS ANHYDROUS
     Dosage: UNK
  2. DAPSONE. [Concomitant]
     Active Substance: DAPSONE
     Dosage: 100 MG, QD
     Route: 048
     Dates: start: 20171126
  3. MONTE AIR [Concomitant]
     Dosage: UNK, QD
     Route: 048
     Dates: start: 2015
  4. MORPHINE [Concomitant]
     Active Substance: MORPHINE
     Dosage: UNK UNK, QD
     Dates: start: 201711
  5. CARLOC [Concomitant]
     Active Substance: CARVEDILOL
     Dosage: UNK UNK, BID
     Route: 048
     Dates: start: 201705
  6. DORMICUM                           /00036201/ [Concomitant]
     Active Substance: NITRAZEPAM
     Dosage: 7.5 MG, QD
     Route: 048
     Dates: start: 2011
  7. MINOCYCLINE [Concomitant]
     Active Substance: MINOCYCLINE\MINOCYCLINE HYDROCHLORIDE
     Dosage: UNK UNK, BID
     Route: 048
     Dates: start: 201709
  8. MOLIPAXIN [Concomitant]
     Active Substance: TRAZODONE HYDROCHLORIDE
     Dosage: 50 MG, QD
     Route: 048
     Dates: start: 2013
  9. CYCLOSPORIN [Concomitant]
     Active Substance: CYCLOSPORINE
     Dosage: UNK
  10. STILPANE                           /01152401/ [Concomitant]
     Active Substance: ACETAMINOPHEN\CAFFEINE\CODEINE PHOSPHATE\MEPROBAMATE
     Dosage: UNK UNK, BID
     Route: 048
     Dates: start: 201707
  11. VEDOLIZUMAB [Suspect]
     Active Substance: VEDOLIZUMAB
     Indication: CROHN^S DISEASE
     Dosage: UNK
     Route: 042
  12. PANAFCORT [Concomitant]
     Active Substance: PREDNISONE
     Dosage: 10 MG, QD
     Route: 048
     Dates: start: 201711
  13. TARGINACT [Concomitant]
     Active Substance: NALOXONE HYDROCHLORIDE\OXYCODONE HYDROCHLORIDE
     Dosage: UNK UNK, BID
     Route: 048
     Dates: start: 201707

REACTIONS (3)
  - Colitis [Not Recovered/Not Resolved]
  - Pyoderma gangrenosum [Not Recovered/Not Resolved]
  - Large intestine perforation [Unknown]

NARRATIVE: CASE EVENT DATE: 201707
